FAERS Safety Report 13313365 (Version 1)
Quarter: 2017Q1

REPORT INFORMATION
  Report Type: Spontaneous
  Country: CN (occurrence: CN)
  Receive Date: 20170309
  Receipt Date: 20170309
  Transmission Date: 20170428
  Serious: Yes (Disabling)
  Sender: FDA-Public Use
  Company Number: CN-PFIZER INC-2017103793

PATIENT
  Age: 19 Year
  Sex: Male
  Weight: 92.5 kg

DRUGS (1)
  1. MEDROL [Suspect]
     Active Substance: METHYLPREDNISOLONE
     Dosage: 32 MG, 1X/DAY
     Route: 048
     Dates: start: 20160702, end: 20161110

REACTIONS (2)
  - Fungal infection [Not Recovered/Not Resolved]
  - Nail necrosis [Not Recovered/Not Resolved]

NARRATIVE: CASE EVENT DATE: 20160902
